FAERS Safety Report 5009383-5 (Version None)
Quarter: 2006Q2

REPORT INFORMATION
  Report Type: 
  Country: None (occurrence: None)
  Receive Date: 20060524
  Receipt Date: 20060518
  Transmission Date: 20061013
  Serious: Yes (Death)
  Sender: FDA-Public Use
  Company Number: US-JNJFOC-20060504372

PATIENT
  Sex: Male

DRUGS (1)
  1. CONCERTA [Suspect]
     Route: 048

REACTIONS (1)
  - COMPLETED SUICIDE [None]
